FAERS Safety Report 23131713 (Version 6)
Quarter: 2024Q4

REPORT INFORMATION
  Report Type: Report from Study
  Country: US (occurrence: US)
  Receive Date: 20231031
  Receipt Date: 20241223
  Transmission Date: 20250115
  Serious: Yes (Hospitalization, Other)
  Sender: ABBVIE
  Company Number: US-ABBVIE-5470433

PATIENT
  Age: 44 Year
  Sex: Female

DRUGS (3)
  1. HUMIRA [Suspect]
     Active Substance: ADALIMUMAB
     Indication: Hidradenitis
     Dosage: FORM STRENGTH: 40 MILLIGRAM?CITRATE FREE
     Route: 058
     Dates: start: 20220906
  2. HUMIRA [Suspect]
     Active Substance: ADALIMUMAB
     Dosage: FORM STRENGTH: 40 MILLIGRAM?LAST ADMIN-JAN 2023.?CITRATE FREE
     Route: 058
     Dates: start: 20230111
  3. HUMIRA [Suspect]
     Active Substance: ADALIMUMAB
     Dosage: FORM STRENGTH: 40MG?CITRATE FREE
     Route: 058
     Dates: start: 20230118

REACTIONS (8)
  - Back injury [Unknown]
  - Scab [Unknown]
  - Wound [Unknown]
  - Hidradenitis [Not Recovered/Not Resolved]
  - Drug ineffective [Unknown]
  - Acne [Unknown]
  - Rash macular [Unknown]
  - Skin discolouration [Unknown]

NARRATIVE: CASE EVENT DATE: 20231001
